FAERS Safety Report 6299933-3 (Version None)
Quarter: 2009Q3

REPORT INFORMATION
  Report Type: 
  Country: None (occurrence: None)
  Receive Date: 20090806
  Receipt Date: 20090731
  Transmission Date: 20100115
  Serious: Yes (Hospitalization)
  Sender: FDA-Public Use
  Company Number: PHHY2009MX30940

PATIENT
  Age: 76 Year
  Sex: Male

DRUGS (3)
  1. DIOVAN [Suspect]
     Indication: HYPERTENSION
     Dosage: 160 MG/DAY
     Route: 048
     Dates: start: 20090201
  2. GALVUS [Suspect]
     Dosage: 50 MG
     Route: 048
  3. INSULIN [Concomitant]

REACTIONS (1)
  - EMBOLISM [None]
